FAERS Safety Report 8399639-0 (Version None)
Quarter: 2012Q2

REPORT INFORMATION
  Report Type: 
  Country: None (occurrence: None)
  Receive Date: 20120531
  Receipt Date: 20120518
  Transmission Date: 20120825
  Serious: No
  Sender: FDA-Public Use
  Company Number: JP-PFIZER INC-2012116854

PATIENT
  Age: 75 Year
  Sex: Male

DRUGS (3)
  1. AMIODARONE HYDROCHLORIDE [Suspect]
     Dosage: 100 MG, 2X/DAY
     Route: 048
     Dates: start: 20110904, end: 20111215
  2. AMIODARONE HYDROCHLORIDE [Suspect]
     Indication: CARDIOGENIC SHOCK
     Dosage: 400 MG, 1X/DAY
     Route: 048
     Dates: start: 20110828, end: 20110903
  3. AMIODARONE HYDROCHLORIDE [Suspect]
     Dosage: 100 MG, 1X/DAY
     Route: 048
     Dates: start: 20111216

REACTIONS (1)
  - KERATOPATHY [None]
